FAERS Safety Report 15564151 (Version 3)
Quarter: 2021Q4

REPORT INFORMATION
  Report Type: Other
  Country: US (occurrence: None)
  Receive Date: 20181030
  Receipt Date: 20211113
  Transmission Date: 20220303
  Serious: Yes (Other)
  Sender: FDA-Public Use
  Company Number: US-MLMSERVICE-20181019-1427711-1

PATIENT
  Age: 35 Year
  Sex: Female

DRUGS (5)
  1. CAPECITABINE [Suspect]
     Active Substance: CAPECITABINE
     Indication: Pituitary tumour benign
     Route: 065
     Dates: start: 201603
  2. TEMOZOLOMIDE [Suspect]
     Active Substance: TEMOZOLOMIDE
     Indication: Pituitary tumour benign
     Route: 065
     Dates: start: 201603
  3. KETOCONAZOLE [Concomitant]
     Active Substance: KETOCONAZOLE
     Indication: Hormone level abnormal
  4. CABERGOLINE [Concomitant]
     Active Substance: CABERGOLINE
     Indication: Hormone level abnormal
  5. PASIREOTIDE [Concomitant]
     Active Substance: PASIREOTIDE

REACTIONS (4)
  - Thrombocytopenia [Unknown]
  - Drug intolerance [Unknown]
  - Pulmonary embolism [Unknown]
  - Acute kidney injury [Unknown]
